FAERS Safety Report 6704642-X (Version None)
Quarter: 2010Q2

REPORT INFORMATION
  Report Type: 
  Country: None (occurrence: None)
  Receive Date: 20100430
  Receipt Date: 20100422
  Transmission Date: 20101027
  Serious: Yes (Other)
  Sender: FDA-Public Use
  Company Number: FR-AMGEN-US332257

PATIENT
  Sex: Male

DRUGS (1)
  1. ENBREL [Suspect]
     Indication: ANKYLOSING SPONDYLITIS
     Route: 058
     Dates: start: 20090119, end: 20091209

REACTIONS (14)
  - ANKYLOSING SPONDYLITIS [None]
  - ASTHENIA [None]
  - CONDITION AGGRAVATED [None]
  - CSF IMMUNOGLOBULIN INCREASED [None]
  - FATIGUE [None]
  - HEMICEPHALALGIA [None]
  - HYPERREFLEXIA [None]
  - HYPOAESTHESIA [None]
  - JOINT STIFFNESS [None]
  - NERVOUS SYSTEM DISORDER [None]
  - PARAESTHESIA [None]
  - POSITIVE ROMBERGISM [None]
  - SENSATION OF HEAVINESS [None]
  - TOOTHACHE [None]
